FAERS Safety Report 16984932 (Version 1)
Quarter: 2019Q4

REPORT INFORMATION
  Report Type: Report from Study
  Country: DE (occurrence: DE)
  Receive Date: 20191101
  Receipt Date: 20191101
  Transmission Date: 20200122
  Serious: Yes (Death, Hospitalization, Other)
  Sender: FDA-Public Use
  Company Number: PHHY2019DE180763

PATIENT
  Age: 52 Year
  Sex: Male
  Weight: 137 kg

DRUGS (2)
  1. TISAGENLECLEUCEL. [Suspect]
     Active Substance: TISAGENLECLEUCEL
     Indication: B-CELL LYMPHOMA
     Dosage: 1.2 X 10^8 POSITIVE VIABLE T CELLS
     Route: 042
     Dates: start: 20190717
  2. RANITIDINE. [Concomitant]
     Active Substance: RANITIDINE
     Indication: PROPHYLAXIS
     Dosage: 300 MG, UNK
     Route: 065
     Dates: start: 20190821

REACTIONS (17)
  - Nausea [Recovered/Resolved]
  - Vomiting [Unknown]
  - Diarrhoea [Recovered/Resolved]
  - Malignant neoplasm progression [Not Recovered/Not Resolved]
  - C-reactive protein increased [Recovered/Resolved]
  - Ascites [Unknown]
  - Nausea [Unknown]
  - Vomiting [Recovered/Resolved]
  - Anaemia [Unknown]
  - Fatigue [Unknown]
  - Out of specification test results [Unknown]
  - Death [Fatal]
  - Vertigo [Recovered/Resolved]
  - Cytokine release syndrome [Unknown]
  - Pyrexia [Recovered/Resolved]
  - Diffuse large B-cell lymphoma [Not Recovered/Not Resolved]
  - Chills [Recovered/Resolved]

NARRATIVE: CASE EVENT DATE: 20190717
